FAERS Safety Report 10223049 (Version 1)
Quarter: 2014Q2

REPORT INFORMATION
  Report Type: Spontaneous
  Country: US (occurrence: None)
  Receive Date: 20140605
  Receipt Date: 20140605
  Transmission Date: 20141212
  Serious: Yes (Hospitalization)
  Sender: FDA-Public Use
  Company Number: UNT-2014-000512

PATIENT
  Age: 47 Year
  Sex: Female
  Weight: 93 kg

DRUGS (4)
  1. REMODULIN (TREPROSTINILSODIUM) INJECTION, 10MG/ML [Suspect]
     Indication: PULMONARY ARTERIAL HYPERTENSION
     Dosage: 0.100 UG/KG, CONTINUING, IV DRIP
     Route: 041
     Dates: start: 20110726
  2. XARELTO (RIVAROXABAN) [Concomitant]
  3. TRACLEER (BOSENTAN) [Concomitant]
  4. REVATIO (SILDENAFIL CITRATE) [Concomitant]

REACTIONS (1)
  - Device occlusion [None]
